FAERS Safety Report 10141740 (Version 2)
Quarter: 2014Q2

REPORT INFORMATION
  Report Type: Spontaneous
  Country: US (occurrence: US)
  Receive Date: 20140429
  Receipt Date: 20140605
  Transmission Date: 20141212
  Serious: No
  Sender: FDA-Public Use
  Company Number: US-009507513-1404USA013511

PATIENT
  Age: 49 Year
  Sex: Female
  Weight: 72.7 kg

DRUGS (6)
  1. OXYTROL FOR WOMEN [Suspect]
     Indication: HYPERTONIC BLADDER
     Dosage: 1 DF, Q3D
     Route: 062
     Dates: start: 20140302, end: 20140410
  2. OXYTROL FOR WOMEN [Suspect]
     Indication: INCONTINENCE
  3. OMEPRAZOLE [Concomitant]
     Indication: GASTROOESOPHAGEAL REFLUX DISEASE
  4. SIMVASTATIN TABLETS, USP [Concomitant]
     Indication: BLOOD CHOLESTEROL
  5. EFFEXOR [Concomitant]
     Indication: DEPRESSION
  6. LODINE [Concomitant]
     Indication: BACK PAIN

REACTIONS (2)
  - Drug ineffective [Unknown]
  - Drug effect decreased [Unknown]
